FAERS Safety Report 23043752 (Version 4)
Quarter: 2025Q2

REPORT INFORMATION
  Report Type: Spontaneous
  Country: US (occurrence: US)
  Receive Date: 20231009
  Receipt Date: 20250529
  Transmission Date: 20250716
  Serious: Yes (Death, Other)
  Sender: CIPLA
  Company Number: US-CIPLA (EU) LIMITED-2023US05853

PATIENT

DRUGS (2)
  1. ALBUTEROL [Suspect]
     Active Substance: ALBUTEROL
     Indication: Dyspnoea
     Route: 065
  2. ALBUTEROL [Suspect]
     Active Substance: ALBUTEROL
     Route: 065

REACTIONS (8)
  - Dyspnoea [Fatal]
  - Condition aggravated [Fatal]
  - Unresponsive to stimuli [Unknown]
  - Device malfunction [Unknown]
  - Drug ineffective [Unknown]
  - Product formulation issue [Unknown]
  - Recalled product administered [Unknown]
  - Recalled product [Unknown]

NARRATIVE: CASE EVENT DATE: 20230607
